FAERS Safety Report 4826032-7 (Version None)
Quarter: 2005Q4

REPORT INFORMATION
  Report Type: 
  Country: None (occurrence: None)
  Receive Date: 20051111
  Receipt Date: 20051107
  Transmission Date: 20060501
  Serious: Yes (Hospitalization)
  Sender: FDA-Public Use
  Company Number: JP-MERCK-0511USA01430

PATIENT
  Age: 48 Year
  Sex: Male

DRUGS (6)
  1. THEOLONG [Concomitant]
     Route: 048
  2. SINGULAIR [Suspect]
     Route: 048
     Dates: start: 20040315
  3. MUCODYNE [Concomitant]
     Indication: SPUTUM RETENTION
     Route: 048
  4. MUCOSOLVAN [Concomitant]
     Route: 048
  5. SEREVENT [Concomitant]
     Route: 055
  6. FLUTIDE [Concomitant]
     Route: 055

REACTIONS (1)
  - ALLERGIC GRANULOMATOUS ANGIITIS [None]
